FAERS Safety Report 9358384 (Version 1)
Quarter: 2013Q2

REPORT INFORMATION
  Report Type: Report from Study
  Country: AR (occurrence: AR)
  Receive Date: 20130620
  Receipt Date: 20130620
  Transmission Date: 20140414
  Serious: Yes (Death)
  Sender: FDA-Public Use
  Company Number: PHHY2013AR063070

PATIENT
  Sex: Male

DRUGS (2)
  1. ONBREZ [Suspect]
     Indication: LUNG DISORDER
  2. ONBREZ [Suspect]
     Indication: OFF LABEL USE

REACTIONS (4)
  - Lung disorder [Fatal]
  - Cardiac arrest [Fatal]
  - Arrhythmia [Fatal]
  - Nosocomial infection [Fatal]
